FAERS Safety Report 23046520 (Version 1)
Quarter: 2023Q4

REPORT INFORMATION
  Report Type: Spontaneous
  Country: CA (occurrence: CA)
  Receive Date: 20231009
  Receipt Date: 20231009
  Transmission Date: 20240110
  Serious: Yes (Hospitalization, Other)
  Sender: FDA-Public Use
  Company Number: CA-SUN PHARMACEUTICAL INDUSTRIES LTD-2023R1-411521

PATIENT
  Age: 35 Year
  Sex: Male

DRUGS (2)
  1. HALOPERIDOL [Suspect]
     Active Substance: HALOPERIDOL
     Indication: Behavioural therapy
     Dosage: UNK
     Route: 065
  2. RISPERIDONE [Suspect]
     Active Substance: RISPERIDONE
     Indication: Behavioural therapy
     Dosage: UNK
     Route: 065

REACTIONS (4)
  - Kleefstra syndrome [Unknown]
  - Therapeutic response decreased [Unknown]
  - Tardive dyskinesia [Unknown]
  - Weight increased [Unknown]
